FAERS Safety Report 8143560 (Version 3)
Quarter: 2012Q4

REPORT INFORMATION
  Report Type: 
  Country: US (occurrence: US)
  Receive Date: 20110920
  Receipt Date: 20120924
  Transmission Date: 20130627
  Serious: Yes (Death, Other)
  Sender: FDA-Public Use
  Company Number: US-AMGEN-USASP2011047634

PATIENT
  Age: 56 Year
  Sex: Male
  Weight: 112 kg

DRUGS (7)
  1. NPLATE [Suspect]
     Indication: IDIOPATHIC THROMBOCYTOPENIC PURPURA
     Route: 058
     Dates: start: 20110203, end: 20110225
  2. CORTICOSTEROIDS [Concomitant]
     Indication: IDIOPATHIC THROMBOCYTOPENIC PURPURA
  3. IMMUNOGLOBULINS [Concomitant]
     Indication: IDIOPATHIC THROMBOCYTOPENIC PURPURA
  4. PLATELETS [Concomitant]
  5. CAPECITABINE [Concomitant]
  6. EPIRUBICIN [Concomitant]
  7. OXALIPLATIN [Concomitant]

REACTIONS (8)
  - Death [Fatal]
  - Malignant neoplasm progression [Not Recovered/Not Resolved]
  - Constipation [Unknown]
  - Dysphoria [Unknown]
  - Bile duct obstruction [Unknown]
  - Chest pain [Unknown]
  - Decreased appetite [Unknown]
  - Fatigue [Unknown]
